FAERS Safety Report 7763700 (Version 9)
Quarter: 2013Q4

REPORT INFORMATION
  Report Type: Spontaneous
  Country: US (occurrence: US)
  Receive Date: 20110118
  Receipt Date: 20131002
  Transmission Date: 20140711
  Serious: Yes (Hospitalization, Other)
  Sender: FDA-Public Use
  Company Number: US-ROCHE-751872

PATIENT
  Age: 25 Year
  Sex: Male
  Weight: 185 kg

DRUGS (1)
  1. ACCUTANE [Suspect]
     Indication: ACNE
     Route: 065
     Dates: start: 20000225, end: 20001014

REACTIONS (9)
  - Crohn^s disease [Unknown]
  - Intestinal obstruction [Unknown]
  - Colitis ulcerative [Unknown]
  - Inflammatory bowel disease [Unknown]
  - Depression [Unknown]
  - Suicidal ideation [Unknown]
  - Injury [Unknown]
  - Epistaxis [Unknown]
  - Irritable bowel syndrome [Unknown]
